FAERS Safety Report 8060491-4 (Version None)
Quarter: 2012Q1

REPORT INFORMATION
  Report Type: 
  Country: None (occurrence: None)
  Receive Date: 20120119
  Receipt Date: 20120119
  Transmission Date: 20120608
  Serious: Yes (Life-Threatening, Hospitalization)
  Sender: FDA-Public Use
  Company Number: None

PATIENT
  Sex: Female
  Weight: 77 kg

DRUGS (3)
  1. DEPAKOTE [Concomitant]
  2. LEXAPRO [Suspect]
     Indication: AFFECTIVE DISORDER
     Dosage: 10MG DAILY ORAL
     Route: 048
     Dates: start: 20110720, end: 20120105
  3. TOPAMAX [Concomitant]

REACTIONS (13)
  - TREMOR [None]
  - AGITATION [None]
  - GENERAL PHYSICAL HEALTH DETERIORATION [None]
  - DIET REFUSAL [None]
  - INSOMNIA [None]
  - REGRESSIVE BEHAVIOUR [None]
  - STEREOTYPY [None]
  - ACUTE PSYCHOSIS [None]
  - HYPERSOMNIA [None]
  - DYSKINESIA [None]
  - CONVERSION DISORDER [None]
  - HALLUCINATIONS, MIXED [None]
  - REFUSAL OF TREATMENT BY PATIENT [None]
